FAERS Safety Report 9879631 (Version 1)
Quarter: 2014Q1

REPORT INFORMATION
  Report Type: Report from Study
  Country: US (occurrence: US)
  Receive Date: 20140206
  Receipt Date: 20140206
  Transmission Date: 20141002
  Serious: Yes (Other)
  Sender: FDA-Public Use
  Company Number: US-ABBVIE-14P-163-1196888-00

PATIENT
  Age: 77 Year
  Sex: Male
  Weight: 63.3 kg

DRUGS (2)
  1. LUPRON DEPOT [Suspect]
     Indication: PROSTATE CANCER
     Route: 050
     Dates: start: 20131106, end: 20131106
  2. TAK-700 [Concomitant]
     Indication: PROSTATE CANCER
     Route: 065
     Dates: start: 20131106, end: 20140123

REACTIONS (9)
  - Abdominal pain [Recovering/Resolving]
  - Pancreatitis [Recovered/Resolved]
  - Anaemia [Recovering/Resolving]
  - Vomiting [Recovering/Resolving]
  - Lipase increased [Recovering/Resolving]
  - Amylase increased [Recovering/Resolving]
  - Hypermagnesaemia [Recovering/Resolving]
  - Hypokalaemia [Recovering/Resolving]
  - Hypertension [Recovering/Resolving]
